FAERS Safety Report 10715007 (Version 1)
Quarter: 2015Q1

REPORT INFORMATION
  Report Type: Spontaneous
  Country: US (occurrence: US)
  Receive Date: 20150115
  Receipt Date: 20150115
  Transmission Date: 20150721
  Serious: No
  Sender: FDA-Public Use
  Company Number: US-GLAXOSMITHKLINE-US2014030839

PATIENT
  Age: 71 Year
  Sex: Male

DRUGS (16)
  1. ANORO ELLIPTA [Suspect]
     Active Substance: UMECLIDINIUM BROMIDE\VILANTEROL TRIFENATATE
     Indication: CHRONIC OBSTRUCTIVE PULMONARY DISEASE
     Dosage: 1 PUFF(S), QD
     Route: 055
     Dates: start: 20141113
  2. SINGULAIR [Concomitant]
     Active Substance: MONTELUKAST SODIUM
  3. IBUPROFEN. [Concomitant]
     Active Substance: IBUPROFEN
  4. LISINOPRIL. [Concomitant]
     Active Substance: LISINOPRIL
  5. VITAMIN B12 [Concomitant]
     Active Substance: CYANOCOBALAMIN
  6. ASPIRIN. [Concomitant]
     Active Substance: ASPIRIN
  7. VITAMIN D [Concomitant]
     Active Substance: CHOLECALCIFEROL
  8. BUDESONIDE. [Concomitant]
     Active Substance: BUDESONIDE
  9. PREDNISONE. [Concomitant]
     Active Substance: PREDNISONE
  10. TRAMADOL [Concomitant]
     Active Substance: TRAMADOL
  11. XANAX [Concomitant]
     Active Substance: ALPRAZOLAM
  12. NEBULISER (MEDICATION UNKNOWN) [Concomitant]
  13. ALBUTEROL. [Concomitant]
     Active Substance: ALBUTEROL
  14. OYSTER SHELL [Concomitant]
     Active Substance: OSTREA EDULIS SHELL
  15. ASTRO NASAL SPRAY (MEDICATION UNKNOWN) [Concomitant]
  16. NEXIUM [Concomitant]
     Active Substance: ESOMEPRAZOLE MAGNESIUM

REACTIONS (2)
  - Psychomotor hyperactivity [Not Recovered/Not Resolved]
  - Sneezing [Not Recovered/Not Resolved]

NARRATIVE: CASE EVENT DATE: 20141120
